FAERS Safety Report 8896851 (Version 1)
Quarter: 2012Q4

REPORT INFORMATION
  Report Type: 
  Country: US (occurrence: US)
  Receive Date: 20121108
  Receipt Date: 20121108
  Transmission Date: 20130627
  Serious: No
  Sender: FDA-Public Use
  Company Number: US-ASTRAZENECA-2012SE82711

PATIENT

DRUGS (1)
  1. PULMICORT FLEXHALER [Suspect]
     Dosage: 180 mcg with 120 doses
     Route: 055

REACTIONS (3)
  - Dyspnoea [Unknown]
  - Asthma [Unknown]
  - Circumstance or information capable of leading to medication error [Unknown]
